FAERS Safety Report 8296221-0 (Version None)
Quarter: 2012Q2

REPORT INFORMATION
  Report Type: 
  Country: None (occurrence: None)
  Receive Date: 20120418
  Receipt Date: 20120406
  Transmission Date: 20120825
  Serious: Yes (Hospitalization)
  Sender: FDA-Public Use
  Company Number: PHHY2012JP027420

PATIENT
  Age: 36 Year
  Sex: Female

DRUGS (6)
  1. MEDROL [Concomitant]
     Dosage: UNK UKN, UNK
  2. PREDNISOLONE [Concomitant]
     Indication: IMMUNOSUPPRESSION
     Route: 048
  3. CYCLOSPORINE [Suspect]
     Indication: IMMUNOSUPPRESSION
     Dosage: UNK UKN, UNK
     Route: 048
  4. AZATHIOPRINE [Concomitant]
     Indication: IMMUNOSUPPRESSION
     Route: 048
  5. ANTIHYPERTENSIVES [Concomitant]
  6. MIZORIBINE [Concomitant]
     Indication: IMMUNOSUPPRESSION
     Route: 048

REACTIONS (10)
  - C-REACTIVE PROTEIN INCREASED [None]
  - PREMATURE LABOUR [None]
  - HYDRONEPHROSIS [None]
  - MATERNAL EXPOSURE DURING PREGNANCY [None]
  - URETERAL SPASM [None]
  - PYREXIA [None]
  - DEVICE OCCLUSION [None]
  - BLOOD CREATININE INCREASED [None]
  - HYPERTENSION [None]
  - URINARY TRACT INFECTION [None]
